FAERS Safety Report 9183073 (Version 1)
Quarter: 2012Q4

REPORT INFORMATION
  Report Type: 
  Country: JP (occurrence: JP)
  Receive Date: 20121030
  Receipt Date: 20121030
  Transmission Date: 20130627
  Serious: Yes (Other)
  Sender: FDA-Public Use
  Company Number: JP-009507513-2012SP022479

PATIENT
  Age: 57 Year
  Sex: Female
  Weight: 72 kg

DRUGS (8)
  1. PEGINTERFERON ALFA-2B [Suspect]
     Indication: HEPATITIS C
     Dosage: 1.5 Microgram per kilogram, QW
     Route: 058
     Dates: start: 20120228, end: 20120228
  2. PEGINTERFERON ALFA-2B [Suspect]
     Dosage: 0.75 Microgram per kilogram, QW
     Route: 058
     Dates: start: 20120306
  3. REBETOL [Suspect]
     Indication: HEPATITIS C
     Dosage: 800 mg, QD
     Route: 048
     Dates: start: 20120228, end: 20120318
  4. REBETOL [Suspect]
     Dosage: 200 mg, QD
     Route: 048
     Dates: start: 20120319
  5. TELAVIC [Suspect]
     Indication: HEPATITIS C
     Dosage: 2250 mg, QD
     Route: 048
     Dates: start: 20120228, end: 20120228
  6. TELAVIC [Suspect]
     Dosage: 1500 mg, QD
     Route: 048
     Dates: start: 20120319
  7. TALION (BEPOTASTINE BESYLATE) [Concomitant]
     Indication: RASH
     Dosage: UPDATE(22JUN2012)START DATE
     Route: 048
     Dates: start: 20120303, end: 20120310
  8. ZYLORIC [Concomitant]
     Indication: BLOOD URIC ACID INCREASED
     Dosage: UPDATE(22JUN2012)START DATE
     Route: 048
     Dates: start: 20120307

REACTIONS (1)
  - Platelet count decreased [Recovering/Resolving]
